FAERS Safety Report 15694041 (Version 18)
Quarter: 2022Q2

REPORT INFORMATION
  Report Type: Report from Study
  Country: FR (occurrence: None)
  Receive Date: 20181206
  Receipt Date: 20220531
  Transmission Date: 20220720
  Serious: Yes (Death, Hospitalization, Other)
  Sender: FDA-Public Use
  Company Number: FR-EISAI MEDICAL RESEARCH-EC-2018-048619

PATIENT
  Age: 55 Year
  Sex: Male
  Weight: 83 kg

DRUGS (23)
  1. LENVATINIB [Suspect]
     Active Substance: LENVATINIB
     Indication: Hepatocellular carcinoma
     Route: 048
     Dates: start: 20181115, end: 20181121
  2. LENVATINIB [Suspect]
     Active Substance: LENVATINIB
     Route: 048
     Dates: start: 20181122, end: 20181128
  3. LENVATINIB [Suspect]
     Active Substance: LENVATINIB
     Route: 048
     Dates: start: 20181220, end: 20190218
  4. LENVATINIB [Suspect]
     Active Substance: LENVATINIB
     Route: 048
     Dates: start: 20190321, end: 20191008
  5. LENVATINIB [Suspect]
     Active Substance: LENVATINIB
     Route: 048
     Dates: start: 20191017, end: 20200216
  6. LENVATINIB [Suspect]
     Active Substance: LENVATINIB
     Route: 048
     Dates: start: 20200224, end: 20200329
  7. LENVATINIB [Suspect]
     Active Substance: LENVATINIB
     Route: 048
     Dates: start: 20200414, end: 20200816
  8. LENVATINIB [Suspect]
     Active Substance: LENVATINIB
     Route: 048
     Dates: start: 20200820, end: 20200909
  9. LENVATINIB [Suspect]
     Active Substance: LENVATINIB
     Route: 048
     Dates: start: 20200928, end: 20210411
  10. PEMBROLIZUMAB [Suspect]
     Active Substance: PEMBROLIZUMAB
     Indication: Hepatocellular carcinoma
     Route: 041
     Dates: start: 20181115, end: 20181206
  11. PEMBROLIZUMAB [Suspect]
     Active Substance: PEMBROLIZUMAB
     Route: 041
     Dates: start: 20181227, end: 20190228
  12. PEMBROLIZUMAB [Suspect]
     Active Substance: PEMBROLIZUMAB
     Route: 041
     Dates: start: 20190523, end: 2019
  13. PEMBROLIZUMAB [Suspect]
     Active Substance: PEMBROLIZUMAB
     Route: 041
     Dates: start: 20191017, end: 20200217
  14. PEMBROLIZUMAB [Suspect]
     Active Substance: PEMBROLIZUMAB
     Route: 041
     Dates: start: 20200824, end: 20200824
  15. PEMBROLIZUMAB [Suspect]
     Active Substance: PEMBROLIZUMAB
     Route: 041
     Dates: start: 20201005, end: 20201026
  16. LANTUS [Concomitant]
     Active Substance: INSULIN GLARGINE
  17. NOVORAPID [Concomitant]
     Active Substance: INSULIN ASPART
  18. DUPHALAC [Concomitant]
     Active Substance: LACTULOSE
  19. DOLIPRANE [Concomitant]
     Active Substance: ACETAMINOPHEN
  20. RACECADOTRIL [Concomitant]
     Active Substance: RACECADOTRIL
  21. ACUPAN [Concomitant]
     Active Substance: NEFOPAM HYDROCHLORIDE
  22. SMECTA [Concomitant]
     Active Substance: MONTMORILLONITE
  23. RIFAXIMIN [Concomitant]
     Active Substance: RIFAXIMIN

REACTIONS (9)
  - Hepatic encephalopathy [Not Recovered/Not Resolved]
  - Asthenia [Recovered/Resolved]
  - Pyrexia [Recovered/Resolved]
  - Intra-abdominal fluid collection [Recovered/Resolved]
  - Haemoptysis [Recovered/Resolved]
  - Fall [Not Recovered/Not Resolved]
  - Pulmonary sepsis [Not Recovered/Not Resolved]
  - Respiratory distress [Fatal]
  - Blood bilirubin increased [Not Recovered/Not Resolved]

NARRATIVE: CASE EVENT DATE: 20181121
